FAERS Safety Report 8823858 (Version 1)
Quarter: 2012Q4

REPORT INFORMATION
  Report Type: Report from Study
  Country: JP (occurrence: JP)
  Receive Date: 20121003
  Receipt Date: 20121003
  Transmission Date: 20130627
  Serious: Yes (Hospitalization)
  Sender: FDA-Public Use
  Company Number: JP-BAXTER-2012BAX018590

PATIENT
  Age: 62 Year
  Sex: Female
  Weight: 53.6 kg

DRUGS (3)
  1. CYCLOPHOSPHAMIDE FOR INJECTION, USP [Suspect]
     Indication: MALIGNANT BREAST NEOPLASM
     Route: 041
     Dates: start: 20120809
  2. FLUOROURACIL [Suspect]
     Indication: MALIGNANT BREAST NEOPLASM
     Route: 041
     Dates: start: 20120809
  3. EPIRUBICIN HYDROCHLORIDE [Suspect]
     Indication: MALIGNANT BREAST NEOPLASM
     Route: 041
     Dates: start: 20120809

REACTIONS (1)
  - Pneumonia [Recovered/Resolved]
